FAERS Safety Report 6813626-2 (Version None)
Quarter: 2010Q3

REPORT INFORMATION
  Report Type: 
  Country: None (occurrence: None)
  Receive Date: 20100701
  Receipt Date: 20100624
  Transmission Date: 20110219
  Serious: Yes (Hospitalization)
  Sender: FDA-Public Use
  Company Number: AU-ROCHE-711658

PATIENT
  Sex: Male
  Weight: 90 kg

DRUGS (3)
  1. RIBAVIRIN [Suspect]
     Indication: HEPATITIS C
     Route: 048
     Dates: start: 20091015, end: 20100401
  2. PEGINTERFERON ALFA-2A [Suspect]
     Indication: HEPATITIS C
     Route: 058
     Dates: start: 20091015, end: 20100328
  3. BLINDED TMC435 [Suspect]
     Indication: HEPATITIS C
     Dosage: FREQUENCY: QD, DOSE BLINDED
     Route: 048
     Dates: start: 20091015, end: 20100401

REACTIONS (1)
  - CHOLECYSTITIS [None]
